FAERS Safety Report 8199338-4 (Version None)
Quarter: 2012Q1

REPORT INFORMATION
  Report Type: 
  Country: None (occurrence: None)
  Receive Date: 20120309
  Receipt Date: 20120305
  Transmission Date: 20120608
  Serious: Yes (Other)
  Sender: FDA-Public Use
  Company Number: PHHY2011CA10753

PATIENT
  Sex: Male

DRUGS (2)
  1. SANDOSTATIN LAR [Suspect]
     Indication: CARCINOID SYNDROME
     Dosage: 30 MG, QMO
     Route: 030
     Dates: start: 20061213
  2. AMIODARONE HCL [Suspect]

REACTIONS (5)
  - TACHYCARDIA [None]
  - CONSTIPATION [None]
  - INTESTINAL HAEMORRHAGE [None]
  - HEART RATE INCREASED [None]
  - LIMB INJURY [None]
